FAERS Safety Report 7432328-5 (Version None)
Quarter: 2011Q2

REPORT INFORMATION
  Report Type: 
  Country: None (occurrence: None)
  Receive Date: 20110414
  Receipt Date: 20110401
  Transmission Date: 20111010
  Serious: Yes (Hospitalization)
  Sender: FDA-Public Use
  Company Number: 2011AP000494

PATIENT
  Age: 50 Year
  Sex: Female

DRUGS (5)
  1. CLARITHROMYCIN [Suspect]
     Indication: LOWER RESPIRATORY TRACT INFECTION
     Dosage: 500 MG;BID
     Dates: end: 20110113
  2. AMISULPRIDE (AMISULPRIDE) [Concomitant]
  3. REBOXETINE (REBOXETINE) [Concomitant]
  4. CLOZARIL [Suspect]
     Indication: SCHIZOPHRENIA
     Dosage: 50 MG;PO;AM ; 300 MG;PO;PM
     Route: 048
     Dates: start: 19970402
  5. CLOZARIL [Suspect]
     Indication: SCHIZOPHRENIA
     Dosage: 50 MG;PO;AM ; 300 MG;PO;PM
     Route: 048
     Dates: start: 19970402

REACTIONS (6)
  - CONFUSIONAL STATE [None]
  - BLOOD PRESSURE INCREASED [None]
  - OXYGEN SATURATION DECREASED [None]
  - DRUG INTERACTION [None]
  - HEART RATE INCREASED [None]
  - DYSPNOEA [None]
